FAERS Safety Report 17735362 (Version 1)
Quarter: 2020Q2

REPORT INFORMATION
  Report Type: Spontaneous
  Country: FR (occurrence: FR)
  Receive Date: 20200501
  Receipt Date: 20200501
  Transmission Date: 20200714
  Serious: Yes (Death)
  Sender: FDA-Public Use
  Company Number: FR-MYLANLABS-2020M1043154

PATIENT
  Age: 67 Year
  Sex: Male
  Weight: 75.6 kg

DRUGS (7)
  1. CANDESARTAN. [Suspect]
     Active Substance: CANDESARTAN
     Indication: HYPERTENSION
     Dosage: 8 MILLIGRAM, QD
     Route: 048
     Dates: start: 20200310, end: 20200314
  2. FLUOROURACILE [Interacting]
     Active Substance: FLUOROURACIL
     Indication: OESOPHAGEAL CARCINOMA
     Dosage: 2650 MILLIGRAM, CYCLE
     Route: 041
     Dates: start: 20200309, end: 20200309
  3. AUGMENTIN [Interacting]
     Active Substance: AMOXICILLIN\CLAVULANATE POTASSIUM
     Indication: ANTIBIOTIC THERAPY
     Dosage: 3 GRAM, QD
     Route: 042
     Dates: start: 20200303, end: 20200310
  4. CISPLATIN. [Interacting]
     Active Substance: CISPLATIN
     Indication: OESOPHAGEAL CARCINOMA
     Dosage: 76 MILLIGRAM, CYCLE
     Route: 041
     Dates: start: 20200309, end: 20200309
  5. INDAPAMIDE. [Interacting]
     Active Substance: INDAPAMIDE
     Indication: HYPERTENSION
     Dosage: 2.5 MILLIGRAM, QD
     Route: 048
     Dates: end: 20200314
  6. DOCETAXEL. [Interacting]
     Active Substance: DOCETAXEL
     Indication: OESOPHAGEAL CARCINOMA
     Dosage: 76 MILLIGRAM, CYCLE
     Route: 041
     Dates: start: 20200309, end: 20200309
  7. EXFORGE [Interacting]
     Active Substance: AMLODIPINE BESYLATE\VALSARTAN
     Indication: HYPERTENSION
     Dosage: 1 DOSAGE FORM, QD
     Route: 048
     Dates: end: 20200314

REACTIONS (5)
  - Hepatic ischaemia [Fatal]
  - Drug interaction [Unknown]
  - Hypovolaemic shock [Fatal]
  - Diarrhoea [Fatal]
  - Gastrointestinal ischaemia [Fatal]

NARRATIVE: CASE EVENT DATE: 202003
